FAERS Safety Report 6560523-6 (Version None)
Quarter: 2010Q1

REPORT INFORMATION
  Report Type: 
  Country: None (occurrence: None)
  Receive Date: 20100129
  Receipt Date: 20090921
  Transmission Date: 20100710
  Serious: No
  Sender: FDA-Public Use
  Company Number: US-ABBOTT-09P-163-0598818-00

PATIENT
  Sex: Female

DRUGS (10)
  1. HUMIRA [Suspect]
     Indication: ANKYLOSING SPONDYLITIS
     Dosage: FIRST DOSE
     Route: 058
     Dates: start: 20090401, end: 20090514
  2. HUMIRA [Suspect]
     Dosage: SECOND DOSE
     Dates: start: 20090701, end: 20090701
  3. HUMIRA [Suspect]
     Dosage: THIRD DOSE
     Dates: start: 20090810, end: 20090810
  4. SULFASALAZINE [Suspect]
     Indication: ANKYLOSING SPONDYLITIS
     Dates: start: 20090824, end: 20090901
  5. SULFASALAZINE [Suspect]
     Dates: start: 20090901, end: 20090917
  6. WELLBUTRIN [Concomitant]
     Indication: ANXIETY
     Dosage: UNKNOWN
     Dates: start: 20060101
  7. WELLBUTRIN [Concomitant]
     Indication: DEPRESSION
  8. EFFEXOR [Concomitant]
     Indication: ANXIETY
     Dosage: UNKNOWN
     Dates: start: 20060101
  9. EFFEXOR [Concomitant]
     Indication: DEPRESSION
  10. LEVOXYL [Concomitant]
     Indication: HYPOTHYROIDISM
     Dosage: UNKNOWN
     Dates: start: 19990101

REACTIONS (10)
  - ANXIETY [None]
  - CONSTIPATION [None]
  - COUGH [None]
  - DYSPNOEA [None]
  - FATIGUE [None]
  - LUNG DISORDER [None]
  - PAIN [None]
  - RHINORRHOEA [None]
  - SPUTUM DISCOLOURED [None]
  - UPPER RESPIRATORY TRACT INFECTION [None]
